FAERS Safety Report 7644639-9 (Version None)
Quarter: 2011Q3

REPORT INFORMATION
  Report Type: 
  Country: None (occurrence: None)
  Receive Date: 20110729
  Receipt Date: 20110722
  Transmission Date: 20111222
  Serious: Yes (Hospitalization)
  Sender: FDA-Public Use
  Company Number: FR-PFIZER INC-2011166709

PATIENT
  Age: 66 Year
  Sex: Female

DRUGS (5)
  1. SERETIDE DISKUS [Concomitant]
     Indication: ASTHMA LATE ONSET
     Dosage: 1 DF, 2X/DAY
     Route: 055
  2. SINGULAIR [Concomitant]
     Indication: ASTHMA LATE ONSET
     Dosage: 10 MG, 1X/DAY
     Route: 048
  3. CLINDAMYCIN HCL [Suspect]
     Indication: SKIN INFECTION
     Dosage: 1 DF, 3X/DAY
     Dates: start: 20110608, end: 20110622
  4. FLIXONASE [Concomitant]
     Indication: ASTHMA LATE ONSET
     Dosage: 50 A?G A DAY
     Route: 055
  5. LEVOTHYROXINE SODIUM [Concomitant]
     Indication: HYPOTHYROIDISM
     Dosage: 112.5 A?G
     Route: 048

REACTIONS (2)
  - OEDEMA [None]
  - RASH MACULO-PAPULAR [None]
